FAERS Safety Report 9536505 (Version 1)
Quarter: 2013Q2

REPORT INFORMATION
  Report Type: Spontaneous
  Country: US (occurrence: None)
  Receive Date: 20130515
  Receipt Date: 20130515
  Transmission Date: 20140414
  Serious: Yes (Other)
  Sender: FDA-Public Use
  Company Number: FK201202903

PATIENT
  Age: 54 Year
  Sex: Male

DRUGS (1)
  1. STERILE VANCOMYCIN HYDROCHLORIDE [Suspect]
     Indication: GANGRENE
     Route: 042
     Dates: start: 20120825, end: 20120902

REACTIONS (2)
  - Blood creatinine increased [None]
  - Renal failure acute [None]
